FAERS Safety Report 11495954 (Version 3)
Quarter: 2015Q4

REPORT INFORMATION
  Report Type: Spontaneous
  Country: VE (occurrence: VE)
  Receive Date: 20150911
  Receipt Date: 20151012
  Transmission Date: 20160304
  Serious: Yes (Other)
  Sender: FDA-Public Use
  Company Number: VE-GLAXOSMITHKLINE-VE2015GSK126344

PATIENT
  Sex: Female
  Weight: 54 kg

DRUGS (1)
  1. LAMICTAL [Suspect]
     Active Substance: LAMOTRIGINE
     Indication: SEIZURE
     Dosage: 150 MG, BID
     Route: 048
     Dates: start: 20130101

REACTIONS (1)
  - Petit mal epilepsy [Recovered/Resolved]
